FAERS Safety Report 8480921-3 (Version None)
Quarter: 2012Q2

REPORT INFORMATION
  Report Type: 
  Country: None (occurrence: None)
  Receive Date: 20120625
  Receipt Date: 20120612
  Transmission Date: 20120825
  Serious: Yes (Hospitalization)
  Sender: FDA-Public Use
  Company Number: 2012P1042387

PATIENT
  Age: 27 Year
  Sex: Female

DRUGS (2)
  1. SODIUM PHENYLBUTYRATE [Suspect]
     Indication: ORNITHINE TRANSCARBAMOYLASE DEFICIENCY
     Dosage: 0.28 G/KG;QD, 0.40 G/KG;QD
  2. L-ARGININE [Concomitant]

REACTIONS (4)
  - METRORRHAGIA [None]
  - MATERNAL DRUGS AFFECTING FOETUS [None]
  - HYPERAMMONAEMIA [None]
  - PREMATURE LABOUR [None]
